FAERS Safety Report 9238069 (Version 1)
Quarter: 2013Q1

REPORT INFORMATION
  Report Type: Spontaneous
  Country: US (occurrence: None)
  Receive Date: 20121106
  Receipt Date: 20121106
  Transmission Date: 20140127
  Serious: No
  Sender: FDA-Public Use
  Company Number: 1000038199

PATIENT
  Age: 73 Year
  Sex: Female

DRUGS (1)
  1. DALIRESP (ROFLUMILAST) (500 MICROGRAM, TABLETS) [Suspect]
     Indication: CHRONIC OBSTRUCTIVE PULMONARY DISEASE
     Dosage: 500 MCG (500 MCG, 1 IN 1 D, ORAL
     Route: 048
     Dates: start: 20120817, end: 20120823

REACTIONS (5)
  - Feeling abnormal [None]
  - Dizziness [None]
  - Memory impairment [None]
  - Back pain [None]
  - Abdominal pain upper [None]
